FAERS Safety Report 6155897-4 (Version None)
Quarter: 2009Q2

REPORT INFORMATION
  Report Type: 
  Country: None (occurrence: None)
  Receive Date: 20090415
  Receipt Date: 20090408
  Transmission Date: 20091009
  Serious: Yes (Other)
  Sender: FDA-Public Use
  Company Number: US-AMGEN-QUU340467

PATIENT
  Sex: Female

DRUGS (6)
  1. ENBREL [Suspect]
     Indication: PSORIASIS
     Route: 058
     Dates: start: 20090108, end: 20090319
  2. PROZAC [Concomitant]
  3. QVAR 40 [Concomitant]
     Route: 055
  4. PRO-AIR (PARKE DAVIS) [Concomitant]
     Route: 055
  5. DAIVONEX [Concomitant]
     Route: 061
  6. CLOBETASOL PROPIONATE [Concomitant]
     Route: 061

REACTIONS (3)
  - DRY EYE [None]
  - VISION BLURRED [None]
  - VISUAL IMPAIRMENT [None]
